FAERS Safety Report 8386619-4 (Version None)
Quarter: 2012Q2

REPORT INFORMATION
  Report Type: 
  Country: None (occurrence: None)
  Receive Date: 20120525
  Receipt Date: 20120329
  Transmission Date: 20120825
  Serious: No
  Sender: FDA-Public Use
  Company Number: US-GLAXOSMITHKLINE-A0971568A

PATIENT
  Age: 11 Year
  Sex: Female

DRUGS (3)
  1. VERAMYST [Concomitant]
  2. EYE DROPS [Concomitant]
  3. VERAMYST [Suspect]
     Indication: MULTIPLE ALLERGIES
     Dosage: 1SPR PER DAY
     Route: 045
     Dates: start: 20120301

REACTIONS (3)
  - THERAPEUTIC RESPONSE DECREASED [None]
  - DYSGEUSIA [None]
  - EPISTAXIS [None]
